FAERS Safety Report 4896344-X (Version None)
Quarter: 2006Q1

REPORT INFORMATION
  Report Type: 
  Country: None (occurrence: None)
  Receive Date: 20060126
  Receipt Date: 20060110
  Transmission Date: 20060701
  Serious: Yes (Death)
  Sender: FDA-Public Use
  Company Number: 200601IM000088

PATIENT
  Age: 17 Year
  Sex: Female

DRUGS (3)
  1. INTERFERON GAMMA-1B [Suspect]
     Indication: COCCIDIOIDOMYCOSIS
  2. FLUCONAZOLE [Suspect]
     Indication: COCCIDIOIDOMYCOSIS
     Dosage: 1600 MG, ORAL
     Route: 048
  3. VORICONAZOLE [Suspect]
     Indication: COCCIDIOIDOMYCOSIS
     Dosage: 400 MG

REACTIONS (9)
  - ABDOMINAL ABSCESS [None]
  - ABSCESS LIMB [None]
  - COCCIDIOIDOMYCOSIS [None]
  - DISEASE RECURRENCE [None]
  - HAEMATOCHEZIA [None]
  - POSTOPERATIVE WOUND INFECTION [None]
  - PULMONARY COCCIDIOIDES [None]
  - THERAPY NON-RESPONDER [None]
  - WEIGHT INCREASED [None]
